FAERS Safety Report 9543032 (Version 1)
Quarter: 2013Q3

REPORT INFORMATION
  Report Type: Spontaneous
  Country: GB (occurrence: GB)
  Receive Date: 20130923
  Receipt Date: 20130923
  Transmission Date: 20140515
  Serious: Yes (Hospitalization)
  Sender: FDA-Public Use
  Company Number: PHHY2013GB102400

PATIENT
  Age: 38 Year
  Sex: Male

DRUGS (3)
  1. RISPERIDONE [Suspect]
     Indication: AGITATION
     Route: 048
     Dates: start: 20130626, end: 20130724
  2. TRAZODONE [Concomitant]
     Indication: AGITATION
     Dosage: 250 MG QD (ONE AT NIGHT)
     Route: 048
     Dates: start: 20130201
  3. LANSOPRAZOLE [Concomitant]
     Indication: ABDOMINAL DISCOMFORT
     Dosage: 15 MG QD
     Route: 048
     Dates: start: 20130201

REACTIONS (4)
  - Aggression [Recovered/Resolved]
  - Compulsive sexual behaviour [Recovered/Resolved]
  - Condition aggravated [Recovered/Resolved]
  - Disinhibition [Recovered/Resolved]
